FAERS Safety Report 4538830-8 (Version None)
Quarter: 2004Q4

REPORT INFORMATION
  Report Type: 
  Country: None (occurrence: None)
  Receive Date: 20041222
  Receipt Date: 20041201
  Transmission Date: 20050328
  Serious: Yes (Hospitalization, Other)
  Sender: FDA-Public Use
  Company Number: USA041284986

PATIENT
  Age: 74 Year
  Sex: Female
  Weight: 75 kg

DRUGS (2)
  1. HUMULIN N [Suspect]
     Indication: DIABETES MELLITUS
     Dosage: 35 U DAY
     Dates: start: 19830101
  2. HUMULIN R [Suspect]
     Indication: DIABETES MELLITUS
     Dates: start: 19830101

REACTIONS (12)
  - ARTHRALGIA [None]
  - ARTHROPATHY [None]
  - BLOOD GLUCOSE DECREASED [None]
  - BLOOD GLUCOSE INCREASED [None]
  - BURSITIS [None]
  - CONSTIPATION [None]
  - DRUG INEFFECTIVE [None]
  - FALL [None]
  - PAIN IN EXTREMITY [None]
  - THROMBOSIS [None]
  - WEIGHT DECREASED [None]
  - X-RAY LIMB ABNORMAL [None]
